FAERS Safety Report 25802211 (Version 1)
Quarter: 2025Q3

REPORT INFORMATION
  Report Type: Spontaneous
  Country: US (occurrence: None)
  Receive Date: 20250912
  Receipt Date: 20250912
  Transmission Date: 20251021
  Serious: Yes (Death, Hospitalization)
  Sender: FDA-CTU
  Company Number: None

PATIENT
  Age: 52 Year
  Sex: Female

DRUGS (14)
  1. OFEV [Suspect]
     Active Substance: NINTEDANIB
     Indication: Pulmonary fibrosis
     Dosage: 150MG BID ORAL ?
     Route: 048
     Dates: start: 20220211
  2. SILDENAFIL [Concomitant]
     Active Substance: SILDENAFIL
  3. POTASSIUM CHLORIDE [Concomitant]
     Active Substance: POTASSIUM CHLORIDE
  4. PREDNISONE [Concomitant]
     Active Substance: PREDNISONE
  5. ONDANSETRON [Concomitant]
     Active Substance: ONDANSETRON
  6. ALBUTEROL [Concomitant]
     Active Substance: ALBUTEROL
  7. ATROVENT [Concomitant]
     Active Substance: IPRATROPIUM BROMIDE
  8. BUMEX [Concomitant]
     Active Substance: BUMETANIDE
  9. JARDIANCE [Concomitant]
     Active Substance: EMPAGLIFLOZIN
  10. ATORVASTATIN [Concomitant]
     Active Substance: ATORVASTATIN
  11. METOPROLOL [Concomitant]
     Active Substance: METOPROLOL
  12. PANTOPRAZOLE [Concomitant]
     Active Substance: PANTOPRAZOLE
  13. ASPIRIN [Concomitant]
     Active Substance: ASPIRIN
  14. HUMULIN NOS [Concomitant]
     Active Substance: INSULIN HUMAN

REACTIONS (3)
  - Pneumonia [None]
  - Acute respiratory failure [None]
  - Chronic obstructive pulmonary disease [None]

NARRATIVE: CASE EVENT DATE: 20250614
